FAERS Safety Report 9251350 (Version 3)
Quarter: 2013Q3

REPORT INFORMATION
  Report Type: Report from Study
  Country: JP (occurrence: JP)
  Receive Date: 20130424
  Receipt Date: 20130703
  Transmission Date: 20140515
  Serious: Yes (Other)
  Sender: FDA-Public Use
  Company Number: JP-SANOFI-AVENTIS-2013SA041390

PATIENT
  Age: 77 Year
  Sex: Male
  Weight: 37 kg

DRUGS (4)
  1. INSULIN GLARGINE [Suspect]
     Indication: TYPE 2 DIABETES MELLITUS
     Dosage: BEFORE BREAKFAST DOSE:5 UNIT(S)
     Route: 058
     Dates: start: 20120919, end: 20121120
  2. SOLOSTAR [Suspect]
     Indication: DEVICE THERAPY
     Route: 058
     Dates: start: 20120919, end: 20121120
  3. AMARYL [Concomitant]
     Indication: TYPE 2 DIABETES MELLITUS
     Route: 048
     Dates: start: 20120614, end: 20121120
  4. MAGMITT [Concomitant]
     Indication: PROPHYLAXIS
     Route: 048
     Dates: start: 20120914, end: 20121120

REACTIONS (1)
  - Pneumonia [Recovered/Resolved]
